FAERS Safety Report 21844440 (Version 1)
Quarter: 2023Q1

REPORT INFORMATION
  Report Type: Spontaneous
  Country: US (occurrence: None)
  Receive Date: 20230110
  Receipt Date: 20230110
  Transmission Date: 20230417
  Serious: Yes (Other)
  Sender: FDA-Public Use
  Company Number: None

PATIENT
  Age: 18 Year
  Sex: Female

DRUGS (1)
  1. ZINC SULFATE [Suspect]
     Active Substance: ZINC SULFATE
     Dosage: FREQUENCY : AS NEEDED;?
     Route: 042
     Dates: start: 20230104, end: 20230104

REACTIONS (5)
  - Adverse drug reaction [None]
  - Incorrect route of product administration [None]
  - Injection site swelling [None]
  - Injection site pain [None]
  - Product communication issue [None]

NARRATIVE: CASE EVENT DATE: 20230104
